FAERS Safety Report 9737384 (Version 1)
Quarter: 2013Q4

REPORT INFORMATION
  Report Type: Spontaneous
  Country: US (occurrence: US)
  Receive Date: 20131206
  Receipt Date: 20131206
  Transmission Date: 20140711
  Serious: No
  Sender: FDA-Public Use
  Company Number: US-BIOGENIDEC-2013BI098811

PATIENT
  Age: 59 Year
  Sex: Female

DRUGS (11)
  1. TECFIDERA [Suspect]
     Indication: MULTIPLE SCLEROSIS
     Route: 048
     Dates: start: 20130920
  2. B12-ACTIVE [Concomitant]
  3. BACLOFEN [Concomitant]
  4. CALCIUM + D [Concomitant]
  5. OPRAM HYDROBROMITIE [Concomitant]
  6. CO Q-10 [Concomitant]
  7. FOLIC ACID [Concomitant]
  8. GINGER ROOT [Concomitant]
  9. GLUCOSAMINE-CHONDROITIN-MSM [Concomitant]
  10. LEVOTHYROXINE SODIUM [Concomitant]
  11. MILK THISTLE [Concomitant]

REACTIONS (1)
  - Pruritus [Unknown]
